FAERS Safety Report 12594825 (Version 1)
Quarter: 2016Q3

REPORT INFORMATION
  Report Type: Report from Study
  Country: US (occurrence: US)
  Receive Date: 20160726
  Receipt Date: 20160726
  Transmission Date: 20161109
  Serious: No
  Sender: FDA-Public Use
  Company Number: US-009507513-1607USA004692

PATIENT
  Sex: Male

DRUGS (3)
  1. JANUMET [Suspect]
     Active Substance: METFORMIN HYDROCHLORIDE\SITAGLIPTIN PHOSPHATE
     Dosage: UNK
     Route: 048
  2. TOUJEO [Suspect]
     Active Substance: INSULIN GLARGINE
     Dosage: 15 DF, UNK
  3. TOUJEO [Suspect]
     Active Substance: INSULIN GLARGINE
     Dosage: 10 DF, UNK

REACTIONS (1)
  - Blood glucose decreased [Unknown]
